FAERS Safety Report 9232364 (Version 1)
Quarter: 2013Q2

REPORT INFORMATION
  Report Type: Spontaneous
  Country: US (occurrence: US)
  Receive Date: 20130416
  Receipt Date: 20130416
  Transmission Date: 20140414
  Serious: Yes (Other)
  Sender: FDA-Public Use
  Company Number: US-BIOGENIDEC-2013BI032872

PATIENT
  Age: 49 Year
  Sex: Female

DRUGS (2)
  1. TYSABRI [Suspect]
     Indication: MULTIPLE SCLEROSIS
     Route: 042
     Dates: start: 20120904
  2. KEPPRA [Concomitant]
     Indication: CONVULSION

REACTIONS (3)
  - Convulsion [Recovered/Resolved]
  - Amnesia [Recovered/Resolved]
  - Feeling abnormal [Recovered/Resolved]
